FAERS Safety Report 18814383 (Version 5)
Quarter: 2021Q2

REPORT INFORMATION
  Report Type: Report from Study
  Country: BE (occurrence: BE)
  Receive Date: 20210201
  Receipt Date: 20210520
  Transmission Date: 20210717
  Serious: Yes (Hospitalization, Other)
  Sender: FDA-Public Use
  Company Number: BE-JNJFOC-20210139247

PATIENT
  Age: 78 Year
  Sex: Male
  Weight: 79 kg

DRUGS (24)
  1. ASA [Suspect]
     Active Substance: ASPIRIN
     Indication: CARDIOVASCULAR EVENT PROPHYLAXIS
     Dosage: 80 MG, QD
     Dates: start: 20210123
  2. BISOPROLOL [Concomitant]
     Active Substance: BISOPROLOL
     Dosage: 10 MG, QD
     Dates: start: 2011
  3. CIPROFIBRATE [Concomitant]
     Active Substance: CIPROFIBRATE
     Dosage: 100 MG, QD
     Dates: end: 20210121
  4. PANTOPRAZOL [PANTOPRAZOLE] [Concomitant]
     Active Substance: PANTOPRAZOLE
     Dosage: 20 MG, QD
     Dates: start: 20110523
  5. EZETIMIBE. [Concomitant]
     Active Substance: EZETIMIBE
     Dosage: 10 MG, QD
     Dates: start: 20081223
  6. RIVAROXABAN [Suspect]
     Active Substance: RIVAROXABAN
     Indication: PERIPHERAL ARTERIAL OCCLUSIVE DISEASE
  7. ASA [Suspect]
     Active Substance: ASPIRIN
     Indication: PERIPHERAL ARTERIAL OCCLUSIVE DISEASE
     Dosage: 80 MG, QD
     Dates: start: 20110329, end: 20210122
  8. INSULINE ASPARTE [Concomitant]
     Active Substance: INSULIN ASPART
     Dosage: 38 IU, QD
     Dates: start: 20190429
  9. ENOXAPARIN [Concomitant]
     Active Substance: ENOXAPARIN
     Dosage: 2000 IU, QD
     Dates: start: 20200601, end: 20200605
  10. ASA [Suspect]
     Active Substance: ASPIRIN
     Indication: CARDIOVASCULAR EVENT PROPHYLAXIS
  11. HYDROCHLOORTHIAZIDE [Concomitant]
     Active Substance: HYDROCHLOROTHIAZIDE
     Dosage: 12.5 MG, QD
     Dates: start: 20041014
  12. METFORMINE [METFORMIN] [Concomitant]
     Active Substance: METFORMIN HYDROCHLORIDE
     Dosage: 500 MG, BID
     Dates: start: 20040413
  13. ALOGLIPTINE [Concomitant]
     Dosage: 6.25 MG, QD
     Dates: start: 20200511
  14. TELMISARTAN. [Concomitant]
     Active Substance: TELMISARTAN
     Dosage: 80 MG, QD
     Dates: start: 20041014
  15. TRAMADOL. [Concomitant]
     Active Substance: TRAMADOL
     Dosage: 37.5 MG, PRN
     Dates: start: 2010
  16. ENOXAPARIN [Concomitant]
     Active Substance: ENOXAPARIN
     Dosage: 8000 IU, QD
     Dates: start: 20210122, end: 20210125
  17. RIVAROXABAN [Suspect]
     Active Substance: RIVAROXABAN
     Indication: CARDIOVASCULAR EVENT PROPHYLAXIS
  18. ATORVASTATINE [ATORVASTATIN] [Concomitant]
     Active Substance: ATORVASTATIN
     Dosage: 40 MG, QD
     Dates: start: 20160212
  19. CLAVULANIC ACID [Concomitant]
     Active Substance: CLAVULANIC ACID
     Dosage: 200 MG, QID
     Dates: start: 20210121, end: 20210126
  20. PARACETAMOL [Concomitant]
     Active Substance: ACETAMINOPHEN
     Dosage: 375 MG, PRN
     Dates: start: 2010
  21. RIVAROXABAN [Suspect]
     Active Substance: RIVAROXABAN
     Indication: CORONARY ARTERY DISEASE
     Dosage: 2.5 MG, BID
     Route: 048
     Dates: start: 20200714, end: 20210122
  22. INSULINE ASPARTE [Concomitant]
     Active Substance: INSULIN ASPART
     Dosage: 10 IU, QD
     Dates: start: 20190429
  23. INSULINE ASPARTE [Concomitant]
     Active Substance: INSULIN ASPART
     Dosage: 16 IU, QD
     Dates: start: 20190429
  24. INSULINE ASPARTE [Concomitant]
     Active Substance: INSULIN ASPART
     Dosage: 12 IU, QD
     Dates: start: 20190429

REACTIONS (3)
  - Blood loss anaemia [Recovered/Resolved]
  - Chronic kidney disease [Not Recovered/Not Resolved]
  - Pneumonia [Recovered/Resolved]

NARRATIVE: CASE EVENT DATE: 20210121
